FAERS Safety Report 8089615-X (Version None)
Quarter: 2012Q1

REPORT INFORMATION
  Report Type: 
  Country: None (occurrence: None)
  Receive Date: 20120128
  Receipt Date: 20110711
  Transmission Date: 20120608
  Serious: No
  Sender: FDA-Public Use
  Company Number: US-ABBOTT-11P-163-0837909-00

PATIENT
  Age: 24 Year
  Sex: Female

DRUGS (4)
  1. LEXAPRO [Concomitant]
     Indication: DEPRESSION
  2. HUMIRA [Suspect]
     Indication: CROHN'S DISEASE
     Dates: start: 20110501
  3. LEXAPRO [Concomitant]
     Indication: ANXIETY
  4. PENTASA [Concomitant]
     Indication: CROHN'S DISEASE
     Dosage: 4 CAPS. IN THE AM AND 4 CAPS. IN THE PM

REACTIONS (1)
  - OROPHARYNGEAL PAIN [None]
